FAERS Safety Report 4595917-1 (Version None)
Quarter: 2005Q1

REPORT INFORMATION
  Report Type: 
  Country: None (occurrence: None)
  Receive Date: 20050224
  Receipt Date: 20050204
  Transmission Date: 20050727
  Serious: Yes (Hospitalization, Other)
  Sender: FDA-Public Use
  Company Number: GBS041116037

PATIENT
  Age: 35 Year
  Sex: Female

DRUGS (4)
  1. FLUOXETINE [Suspect]
     Indication: DEPRESSION
     Dosage: 20 MG
     Dates: start: 20020101, end: 20041027
  2. SERETIDE [Concomitant]
  3. VENTOLIN [Concomitant]
  4. INFLUENZA VACCINE [Concomitant]

REACTIONS (2)
  - DIARRHOEA [None]
  - THROMBOTIC THROMBOCYTOPENIC PURPURA [None]
